FAERS Safety Report 19704212 (Version 1)
Quarter: 2021Q3

REPORT INFORMATION
  Report Type: Spontaneous
  Country: US (occurrence: US)
  Receive Date: 20210813
  Receipt Date: 20210813
  Transmission Date: 20211014
  Serious: Yes (Hospitalization)
  Sender: FDA-Public Use
  Company Number: None

PATIENT
  Sex: Male

DRUGS (10)
  1. CETRIRIZINE HCL [Concomitant]
  2. ONDANSETRON INJ [Concomitant]
  3. SILDENAFIL 10MG/ML SUSP (112ML) [Suspect]
     Active Substance: SILDENAFIL
     Indication: PULMONARY HYPERTENSION
     Route: 048
     Dates: start: 20200124
  4. FLUCONAZOLE SUS [Concomitant]
  5. GENOTROPIN [Concomitant]
     Active Substance: SOMATROPIN
  6. EPOGEN [Concomitant]
     Active Substance: ERYTHROPOIETIN
  7. CEFEPIME [Concomitant]
     Active Substance: CEFEPIME HYDROCHLORIDE
  8. GENOTROPIN [Concomitant]
     Active Substance: SOMATROPIN
  9. GENTAMIICIN SOL 0.3% OP [Concomitant]
  10. VANCOMYCIN INJ [Concomitant]

REACTIONS (1)
  - Biopsy kidney [None]
